FAERS Safety Report 5477041-9 (Version None)
Quarter: 2007Q4

REPORT INFORMATION
  Report Type: 
  Country: None (occurrence: None)
  Receive Date: 20071004
  Receipt Date: 20070924
  Transmission Date: 20080405
  Serious: Yes (Hospitalization, Other)
  Sender: FDA-Public Use
  Company Number: US-AMGEN-STX237965

PATIENT
  Sex: Female

DRUGS (2)
  1. ENBREL [Suspect]
     Indication: RHEUMATOID ARTHRITIS
     Route: 058
     Dates: start: 20040224, end: 20060923
  2. METHOTREXATE [Concomitant]

REACTIONS (8)
  - ABDOMINAL PAIN UPPER [None]
  - CENTRAL LINE INFECTION [None]
  - GASTRIC CANCER [None]
  - HYPERHIDROSIS [None]
  - NON-HODGKIN'S LYMPHOMA STAGE III [None]
  - PNEUMONIA [None]
  - RENAL FAILURE [None]
  - THYROID NEOPLASM [None]
